FAERS Safety Report 17577513 (Version 1)
Quarter: 2020Q1

REPORT INFORMATION
  Report Type: Spontaneous
  Country: GB (occurrence: GB)
  Receive Date: 20200324
  Receipt Date: 20200324
  Transmission Date: 20200409
  Serious: Yes (Other)
  Sender: FDA-Public Use
  Company Number: GB-PFIZER INC-2020125176

PATIENT
  Age: 46 Year
  Sex: Male
  Weight: 62 kg

DRUGS (9)
  1. FOSTAIR [Concomitant]
     Active Substance: BECLOMETHASONE\FORMOTEROL
     Dosage: USE AS DIRECTED
     Dates: start: 20191206
  2. SALBUTAMOL [Concomitant]
     Active Substance: ALBUTEROL
     Dosage: 2 DF, AS NEEDED
     Route: 055
     Dates: start: 20200108
  3. AMITRIPTYLINE HYDROCHLORIDE. [Concomitant]
     Active Substance: AMITRIPTYLINE HYDROCHLORIDE
     Dosage: 1 DF, 1X/DAY, AT NIGHT
     Dates: start: 20191206
  4. SERTRALINE HCL [Suspect]
     Active Substance: SERTRALINE HYDROCHLORIDE
     Dates: start: 20191206, end: 20200203
  5. GABAPENTIN. [Concomitant]
     Active Substance: GABAPENTIN
     Dates: start: 20191206
  6. VITAMIN B [Concomitant]
     Active Substance: VITAMIN B
     Dosage: 2 DF, 1X/DAY
     Dates: start: 20191206
  7. MIRTAZAPINE. [Concomitant]
     Active Substance: MIRTAZAPINE
     Dates: start: 20200302
  8. SIMVASTATIN. [Concomitant]
     Active Substance: SIMVASTATIN
     Dosage: AT NIGHT
     Dates: start: 20191206
  9. BECLOMETASONE [Concomitant]
     Active Substance: BECLOMETHASONE DIPROPIONATE
     Dosage: 4 DF, 1X/DAY
     Route: 055
     Dates: start: 20191206, end: 20191206

REACTIONS (1)
  - Epilepsy [Recovering/Resolving]
